FAERS Safety Report 19401537 (Version 1)
Quarter: 2021Q2

REPORT INFORMATION
  Report Type: Report from Study
  Country: None (occurrence: US)
  Receive Date: 20210611
  Receipt Date: 20210611
  Transmission Date: 20210717
  Serious: Yes (Other)
  Sender: FDA-Public Use
  Company Number: US-ABBVIE-20K-163-3310418-00

PATIENT
  Age: 50 Year
  Sex: Female
  Weight: 94.43 kg

DRUGS (5)
  1. METOPROLOL. [Concomitant]
     Active Substance: METOPROLOL
     Indication: HYPERTENSION
  2. PFIZER?BIONTECH COVID?19 VACCINE [Suspect]
     Active Substance: TOZINAMERAN
     Route: 030
     Dates: start: 20210321, end: 20210321
  3. HUMIRA [Suspect]
     Active Substance: ADALIMUMAB
     Route: 058
  4. PFIZER?BIONTECH COVID?19 VACCINE [Suspect]
     Active Substance: TOZINAMERAN
     Indication: COVID-19 IMMUNISATION
     Route: 030
     Dates: start: 20210228, end: 20210228
  5. HUMIRA [Suspect]
     Active Substance: ADALIMUMAB
     Indication: RHEUMATOID ARTHRITIS
     Route: 058
     Dates: start: 20200320

REACTIONS (43)
  - Retinal detachment [Recovered/Resolved]
  - Dry skin [Unknown]
  - Impaired self-care [Recovering/Resolving]
  - Joint stiffness [Recovered/Resolved]
  - Dry eye [Not Recovered/Not Resolved]
  - Urticaria [Recovered/Resolved]
  - Sinus congestion [Unknown]
  - Musculoskeletal stiffness [Unknown]
  - Joint warmth [Not Recovered/Not Resolved]
  - Injection site erythema [Not Recovered/Not Resolved]
  - Joint stiffness [Recovering/Resolving]
  - Pain [Recovering/Resolving]
  - Blood pressure increased [Recovered/Resolved]
  - Chills [Unknown]
  - Headache [Not Recovered/Not Resolved]
  - Injection site erythema [Recovered/Resolved]
  - Injection site papule [Not Recovered/Not Resolved]
  - Joint swelling [Recovered/Resolved]
  - Injection site pruritus [Recovered/Resolved]
  - Injection site rash [Not Recovered/Not Resolved]
  - Haemoglobin decreased [Unknown]
  - Arthralgia [Unknown]
  - Fatigue [Recovered/Resolved]
  - Mobility decreased [Recovering/Resolving]
  - Joint swelling [Recovered/Resolved]
  - Arthralgia [Recovered/Resolved]
  - Nasopharyngitis [Unknown]
  - Hypersensitivity [Recovered/Resolved]
  - Joint swelling [Recovering/Resolving]
  - Musculoskeletal stiffness [Recovered/Resolved]
  - Swelling [Not Recovered/Not Resolved]
  - Headache [Unknown]
  - Fatigue [Not Recovered/Not Resolved]
  - Rhinorrhoea [Not Recovered/Not Resolved]
  - Injection site pruritus [Not Recovered/Not Resolved]
  - Sinusitis [Unknown]
  - Gait disturbance [Recovering/Resolving]
  - Loss of personal independence in daily activities [Unknown]
  - Feeling hot [Not Recovered/Not Resolved]
  - Musculoskeletal stiffness [Not Recovered/Not Resolved]
  - Injection site papule [Recovered/Resolved]
  - Ear pruritus [Unknown]
  - Anaemia [Unknown]

NARRATIVE: CASE EVENT DATE: 2020
